FAERS Safety Report 5315399-1 (Version None)
Quarter: 2007Q2

REPORT INFORMATION
  Report Type: 
  Country: None (occurrence: None)
  Receive Date: 20070503
  Receipt Date: 20070424
  Transmission Date: 20071010
  Serious: Yes (Hospitalization, Other)
  Sender: FDA-Public Use
  Company Number: PHEH2007US04082

PATIENT
  Age: 50 Year
  Sex: Female

DRUGS (4)
  1. ZELNORM [Suspect]
     Indication: IRRITABLE BOWEL SYNDROME
     Dosage: 6 MG, QD
     Route: 048
     Dates: start: 20050101, end: 20070401
  2. EFFEXOR [Concomitant]
     Indication: DEPRESSION
  3. PREMARIN [Concomitant]
  4. INDERAL [Concomitant]
     Indication: MIGRAINE

REACTIONS (8)
  - CARDIAC DISORDER [None]
  - CHEST PAIN [None]
  - DYSPNOEA [None]
  - HYPERTENSION [None]
  - INCOHERENT [None]
  - LETHARGY [None]
  - MUSCLE DISORDER [None]
  - PALPITATIONS [None]
